FAERS Safety Report 20608499 (Version 1)
Quarter: 2022Q1

REPORT INFORMATION
  Report Type: Report from Study
  Country: US (occurrence: None)
  Receive Date: 20220317
  Receipt Date: 20220317
  Transmission Date: 20220423
  Serious: Yes (Hospitalization)
  Sender: FDA-Public Use
  Company Number: US-Eisai Medical Research-EC-2022-108303

PATIENT
  Age: 88 Year
  Sex: Female

DRUGS (3)
  1. LENVIMA [Suspect]
     Active Substance: LENVATINIB
     Indication: Hepatic cancer
     Route: 048
     Dates: start: 20220204, end: 202202
  2. NORVASC [Concomitant]
     Active Substance: AMLODIPINE BESYLATE
  3. AVASTIN [Concomitant]
     Active Substance: BEVACIZUMAB

REACTIONS (8)
  - Gastrointestinal haemorrhage [Unknown]
  - Blood pressure increased [Recovered/Resolved]
  - Blood urine present [Unknown]
  - Decreased appetite [Not Recovered/Not Resolved]
  - Vomiting [Not Recovered/Not Resolved]
  - Cognitive disorder [Not Recovered/Not Resolved]
  - Hypokinesia [Not Recovered/Not Resolved]
  - Extra dose administered [Recovered/Resolved]

NARRATIVE: CASE EVENT DATE: 20220201
